FAERS Safety Report 5723532-2 (Version None)
Quarter: 2008Q2

REPORT INFORMATION
  Report Type: 
  Country: None (occurrence: None)
  Receive Date: 20080430
  Receipt Date: 20080424
  Transmission Date: 20081010
  Serious: Yes (Congenital Anomaly)
  Sender: FDA-Public Use
  Company Number: A0713585A

PATIENT

DRUGS (3)
  1. COMBIVIR [Suspect]
     Indication: HIV INFECTION
  2. SUSTIVA [Concomitant]
     Indication: HIV INFECTION
     Dates: start: 20050101, end: 20060925
  3. NORVIR [Concomitant]
     Indication: HIV INFECTION
     Dates: start: 20060925

REACTIONS (2)
  - CONGENITAL FOOT MALFORMATION [None]
  - DRUG EXPOSURE DURING PREGNANCY [None]
